FAERS Safety Report 13674677 (Version 1)
Quarter: 2017Q2

REPORT INFORMATION
  Report Type: Spontaneous
  Country: US (occurrence: US)
  Receive Date: 20170621
  Receipt Date: 20170621
  Transmission Date: 20170830
  Serious: No
  Sender: FDA-Public Use
  Company Number: US-ASTRAZENECA-2017SE64080

PATIENT
  Sex: Male
  Weight: 110.7 kg

DRUGS (1)
  1. SYMBICORT [Suspect]
     Active Substance: BUDESONIDE\FORMOTEROL FUMARATE DIHYDRATE
     Indication: ASTHMA
     Dosage: 80/4.5 FOR ASTHMA 2 PUFFS TWO TIMES A DAY
     Route: 055
     Dates: start: 2017, end: 20170615

REACTIONS (11)
  - Muscle twitching [Recovering/Resolving]
  - Irritability [Recovering/Resolving]
  - Off label use [Unknown]
  - Chest pain [Recovering/Resolving]
  - Fatigue [Unknown]
  - Headache [Unknown]
  - General physical condition abnormal [Unknown]
  - Productive cough [Recovering/Resolving]
  - Wrong technique in product usage process [Unknown]
  - Dysphonia [Recovering/Resolving]
  - Thinking abnormal [Unknown]
